FAERS Safety Report 5789273-0 (Version None)
Quarter: 2008Q2

REPORT INFORMATION
  Report Type: 
  Country: None (occurrence: None)
  Receive Date: 20080626
  Receipt Date: 20080613
  Transmission Date: 20081010
  Serious: Yes (Hospitalization, Disabling, Other)
  Sender: FDA-Public Use
  Company Number: US-BAYER-200825113NA

PATIENT
  Age: 45 Year
  Sex: Female
  Weight: 52 kg

DRUGS (6)
  1. NEXAVAR [Suspect]
     Indication: THYROID CANCER
     Dosage: UNIT DOSE: 200 MG
     Route: 048
     Dates: start: 20071001, end: 20080514
  2. NEXAVAR [Suspect]
     Dosage: TOTAL DAILY DOSE: 200 MG  UNIT DOSE: 200 MG
     Route: 048
     Dates: start: 20071001
  3. NEXAVAR [Suspect]
     Dosage: TOTAL DAILY DOSE: 400 MG  UNIT DOSE: 200 MG
     Route: 048
     Dates: start: 20070902, end: 20070901
  4. NEXAVAR [Suspect]
     Dosage: TOTAL DAILY DOSE: 800 MG  UNIT DOSE: 200 MG
     Route: 048
     Dates: start: 20070811
  5. ZOMETA [Concomitant]
  6. OPIOIDS [Concomitant]

REACTIONS (18)
  - ABDOMINAL PAIN [None]
  - ALOPECIA [None]
  - ANOREXIA [None]
  - ASTHENIA [None]
  - BLISTER [None]
  - BURNS FIRST DEGREE [None]
  - CONSTIPATION [None]
  - DEHYDRATION [None]
  - DRY MOUTH [None]
  - DYSPHAGIA [None]
  - FATIGUE [None]
  - METASTASES TO BONE [None]
  - ORAL INTAKE REDUCED [None]
  - PALMAR-PLANTAR ERYTHRODYSAESTHESIA SYNDROME [None]
  - RED BLOOD CELL COUNT DECREASED [None]
  - STOMATITIS [None]
  - SWELLING FACE [None]
  - WEIGHT DECREASED [None]
